FAERS Safety Report 15434743 (Version 4)
Quarter: 2021Q4

REPORT INFORMATION
  Report Type: Spontaneous
  Country: US (occurrence: US)
  Receive Date: 20180927
  Receipt Date: 20211222
  Transmission Date: 20220303
  Serious: Yes (Other)
  Sender: FDA-Public Use
  Company Number: US-ASTRAZENECA-2018SE16384

PATIENT
  Age: 57 Year
  Sex: Male
  Weight: 104.3 kg

DRUGS (177)
  1. PREVACID [Suspect]
     Active Substance: LANSOPRAZOLE
     Indication: Gastrooesophageal reflux disease
     Dosage: UNK
     Route: 048
     Dates: start: 201009, end: 201610
  2. PREVACID [Suspect]
     Active Substance: LANSOPRAZOLE
     Dosage: 30 MG, UNK
     Route: 065
     Dates: start: 20120425, end: 20161219
  3. PREVACID [Suspect]
     Active Substance: LANSOPRAZOLE
     Dosage: 15 MG, UNK
     Route: 065
  4. LANSOPRAZOLE [Suspect]
     Active Substance: LANSOPRAZOLE
     Indication: Gastrooesophageal reflux disease
     Dosage: 30 MG, UNK
     Route: 048
     Dates: start: 20120425, end: 201402
  5. LANSOPRAZOLE [Suspect]
     Active Substance: LANSOPRAZOLE
     Dosage: 30 MG, UNK
     Route: 048
     Dates: start: 20140414, end: 20140713
  6. LANSOPRAZOLE [Suspect]
     Active Substance: LANSOPRAZOLE
     Dosage: 30 MG, UNK
     Route: 048
     Dates: start: 20141101, end: 20160904
  7. LANSOPRAZOLE [Suspect]
     Active Substance: LANSOPRAZOLE
     Dosage: 30 MG, UNK
     Route: 048
     Dates: start: 20160319, end: 20161219
  8. LANSOPRAZOLE [Suspect]
     Active Substance: LANSOPRAZOLE
     Dosage: 30 MG, UNK
     Dates: start: 20161219
  9. LANSOPRAZOLE [Suspect]
     Active Substance: LANSOPRAZOLE
     Dosage: 15 MG, UNK
  10. PANTOPRAZOLE [Suspect]
     Active Substance: PANTOPRAZOLE
     Indication: Gastrooesophageal reflux disease
     Dosage: 40 MG, 1X/DAY
     Route: 065
     Dates: start: 20080126, end: 20091123
  11. PANTOPRAZOLE [Suspect]
     Active Substance: PANTOPRAZOLE
     Dosage: 40 MG, 1X/DAY
     Route: 048
     Dates: start: 20080126, end: 20090721
  12. PANTOPRAZOLE [Suspect]
     Active Substance: PANTOPRAZOLE
     Dosage: 40 MG, 1X/DAY
     Route: 048
     Dates: start: 20090922, end: 20091222
  13. PANTOPRAZOLE [Suspect]
     Active Substance: PANTOPRAZOLE
     Indication: Gastrooesophageal reflux disease
     Dosage: 40 MG, 1X/DAY
     Route: 048
     Dates: start: 20080126
  14. NEXIUM 24HR [Suspect]
     Active Substance: ESOMEPRAZOLE MAGNESIUM
     Dosage: UNK
     Route: 048
     Dates: start: 201009, end: 201610
  15. NEXIUM [Suspect]
     Active Substance: ESOMEPRAZOLE MAGNESIUM
     Indication: Gastrooesophageal reflux disease
     Dosage: UNK
     Route: 048
     Dates: start: 201009, end: 201010
  16. NEXIUM [Suspect]
     Active Substance: ESOMEPRAZOLE MAGNESIUM
     Dosage: 20 MG, UNK
     Route: 048
     Dates: start: 20100915, end: 20120330
  17. NEXIUM [Suspect]
     Active Substance: ESOMEPRAZOLE MAGNESIUM
     Dosage: UNK
     Route: 065
  18. NEXIUM [Suspect]
     Active Substance: ESOMEPRAZOLE MAGNESIUM
     Dosage: 20 MG, UNK
     Route: 048
     Dates: start: 20100915, end: 20110305
  19. NEXIUM [Suspect]
     Active Substance: ESOMEPRAZOLE MAGNESIUM
     Dosage: 20 MG, UNK
     Route: 048
     Dates: start: 20110307, end: 20120528
  20. NEXIUM [Suspect]
     Active Substance: ESOMEPRAZOLE MAGNESIUM
     Indication: Gastrooesophageal reflux disease
     Dosage: 20 MG, UNK
     Route: 048
     Dates: start: 20100915
  21. ESOMEPRAZOLE [Suspect]
     Active Substance: ESOMEPRAZOLE
     Dosage: UNK
     Route: 048
  22. PREVACID 24 HR [Suspect]
     Active Substance: LANSOPRAZOLE
     Indication: Gastrooesophageal reflux disease
     Dosage: 30 MG, UNK
     Route: 048
     Dates: start: 20120425, end: 20161219
  23. PREVACID 24 HR [Suspect]
     Active Substance: LANSOPRAZOLE
     Dosage: UNK
     Dates: start: 201009, end: 201610
  24. ASPIRIN [Concomitant]
     Active Substance: ASPIRIN
     Indication: Myocardial infarction
     Dosage: 81 MG, UNK
     Route: 065
     Dates: start: 201202
  25. ASPIRIN [Concomitant]
     Active Substance: ASPIRIN
     Indication: Ischaemic heart disease prophylaxis
  26. ACETAMINOPHEN [Concomitant]
     Active Substance: ACETAMINOPHEN
     Indication: Pain
     Dosage: 325 MG, UNK
     Route: 065
     Dates: start: 2008
  27. ACETAMINOPHEN [Concomitant]
     Active Substance: ACETAMINOPHEN
     Indication: Pyrexia
     Dosage: 325 MG, UNK
     Dates: start: 20150224
  28. ACETAMINOPHEN [Concomitant]
     Active Substance: ACETAMINOPHEN
     Dosage: 325 MG, UNK
     Route: 065
     Dates: start: 20160606, end: 20160705
  29. ACETAMINOPHEN [Concomitant]
     Active Substance: ACETAMINOPHEN
     Dosage: 325 MG, UNK
     Route: 065
     Dates: start: 20160827, end: 20160926
  30. KETOROLAC [Concomitant]
     Active Substance: KETOROLAC TROMETHAMINE
     Indication: Pain
     Dosage: 30 MG, UNK
     Route: 030
     Dates: start: 20160727, end: 20161004
  31. KETOROLAC [Concomitant]
     Active Substance: KETOROLAC TROMETHAMINE
     Indication: Analgesic intervention supportive therapy
     Dosage: 20 MG, DAILY
     Dates: start: 20080118, end: 20080817
  32. KETOROLAC [Concomitant]
     Active Substance: KETOROLAC TROMETHAMINE
     Indication: Inflammation
  33. KETOROLAC [Concomitant]
     Active Substance: KETOROLAC TROMETHAMINE
     Indication: Antiinflammatory therapy
  34. PIROXICAM [Concomitant]
     Active Substance: PIROXICAM
     Indication: Pain
     Dosage: 20 MG, 1X/DAY
     Route: 065
     Dates: start: 20080118, end: 20080817
  35. PIROXICAM [Concomitant]
     Active Substance: PIROXICAM
     Indication: Analgesic intervention supportive therapy
  36. PIROXICAM [Concomitant]
     Active Substance: PIROXICAM
     Indication: Inflammation
  37. PIROXICAM [Concomitant]
     Active Substance: PIROXICAM
     Indication: Antiinflammatory therapy
  38. AMOXICILLIN [Concomitant]
     Active Substance: AMOXICILLIN
     Indication: Bacterial infection
     Dosage: 875 MG, 2X/DAY
     Route: 065
     Dates: start: 20090811, end: 20090820
  39. AZITHROMYCIN [Concomitant]
     Active Substance: AZITHROMYCIN
     Indication: Bacterial infection
     Dosage: UNK
     Route: 065
     Dates: start: 20090305, end: 20090310
  40. AZITHROMYCIN [Concomitant]
     Active Substance: AZITHROMYCIN
     Dosage: 250 MG, UNK
     Route: 065
     Dates: start: 20140414, end: 20140418
  41. AZITHROMYCIN [Concomitant]
     Active Substance: AZITHROMYCIN
     Dosage: 500 MG, UNK
     Route: 065
     Dates: start: 201409
  42. CEFADROXIL [Concomitant]
     Active Substance: CEFADROXIL
     Indication: Bacterial infection
     Dosage: 500 MG, UNK
     Route: 065
     Dates: start: 20080826, end: 20080901
  43. CIPROFLOXACIN [Concomitant]
     Active Substance: CIPROFLOXACIN
     Indication: Bacterial infection
     Dosage: 500 MG, UNK
     Route: 065
     Dates: start: 20170526, end: 20170601
  44. LEVOFLOXACIN [Concomitant]
     Active Substance: LEVOFLOXACIN
     Indication: Bacterial infection
     Dosage: 750 MG, UNK
     Route: 065
     Dates: start: 20170107, end: 20170111
  45. PENICILLIN V POTASSIUM [Concomitant]
     Active Substance: PENICILLIN V POTASSIUM
     Indication: Bacterial infection
     Dosage: 500 MG, UNK
     Route: 065
     Dates: start: 20100720, end: 20100802
  46. BACTRIM DS [Concomitant]
     Active Substance: SULFAMETHOXAZOLE\TRIMETHOPRIM
     Indication: Bacterial infection
     Dosage: UNK, 2X/DAY
     Route: 065
     Dates: start: 20090917, end: 20090923
  47. BACTRIM DS [Concomitant]
     Active Substance: SULFAMETHOXAZOLE\TRIMETHOPRIM
     Dosage: UNK
     Route: 065
     Dates: start: 20170621, end: 20170627
  48. AMLODIPINE BESYLATE\BENAZEPRIL HYDROCHLORIDE [Concomitant]
     Active Substance: AMLODIPINE BESYLATE\BENAZEPRIL HYDROCHLORIDE
     Indication: Hypertension
     Dosage: 5-20 MG, 1X/DAY
     Route: 065
     Dates: start: 20080109, end: 20090721
  49. AMLODIPINE BESYLATE\BENAZEPRIL HYDROCHLORIDE [Concomitant]
     Active Substance: AMLODIPINE BESYLATE\BENAZEPRIL HYDROCHLORIDE
     Dosage: 5-20 MG, 1X/DAY
     Route: 065
     Dates: start: 20090924, end: 20091222
  50. LISINOPRIL [Concomitant]
     Active Substance: LISINOPRIL
     Indication: Hypertension
     Dosage: 20 MG, UNK
     Route: 065
     Dates: start: 201301
  51. LISINOPRIL [Concomitant]
     Active Substance: LISINOPRIL
     Dosage: 20 MG, UNK
     Route: 065
     Dates: start: 20150413, end: 20150711
  52. LISINOPRIL [Concomitant]
     Active Substance: LISINOPRIL
     Dosage: 20 MG, UNK
     Dates: start: 20151229, end: 20160128
  53. LISINOPRIL [Concomitant]
     Active Substance: LISINOPRIL
     Dosage: 20 MG, UNK
     Dates: start: 20161120, end: 20161220
  54. DIOVAN [Concomitant]
     Active Substance: VALSARTAN
     Indication: Hypertension
     Dosage: 160 MG, UNK
     Route: 065
     Dates: start: 20100915, end: 20120227
  55. DIOVAN [Concomitant]
     Active Substance: VALSARTAN
     Dosage: 160 MG, UNK
     Dates: start: 20120510, end: 20120708
  56. DIOVAN [Concomitant]
     Active Substance: VALSARTAN
     Dosage: 160 MG, UNK
     Dates: start: 20121227, end: 20160815
  57. FUROSEMIDE [Concomitant]
     Active Substance: FUROSEMIDE
     Indication: Hypertension
     Dosage: 40 MG, DAILY
     Route: 065
     Dates: start: 20080731, end: 20090812
  58. FUROSEMIDE [Concomitant]
     Active Substance: FUROSEMIDE
     Dosage: 40 MG, DAILY
     Dates: start: 20091005, end: 20091104
  59. FUROSEMIDE [Concomitant]
     Active Substance: FUROSEMIDE
     Dosage: 40 MG, UNK
     Route: 065
     Dates: start: 20100915, end: 20130726
  60. FUROSEMIDE [Concomitant]
     Active Substance: FUROSEMIDE
     Dosage: 40 MG, UNK
     Route: 065
     Dates: start: 20140411, end: 20150915
  61. FUROSEMIDE [Concomitant]
     Active Substance: FUROSEMIDE
     Dosage: 20 MG, UNK
     Dates: start: 20161105, end: 20161205
  62. TRIAMTERENE AND HYDROCHLOROTHIAZIDE [Concomitant]
     Active Substance: HYDROCHLOROTHIAZIDE\TRIAMTERENE
     Indication: Hypertension
     Dosage: 37.5-25 MG, DAILY
     Route: 065
     Dates: start: 20080424, end: 20080825
  63. PRAVASTATIN [Concomitant]
     Active Substance: PRAVASTATIN
     Indication: Blood cholesterol abnormal
     Dosage: 20 MG, 1X/DAY
     Route: 065
     Dates: start: 20080424
  64. PRAVASTATIN [Concomitant]
     Active Substance: PRAVASTATIN
     Dosage: 20 MG, 1X/DAY
     Route: 065
     Dates: start: 20090423, end: 20091104
  65. PRAVASTATIN [Concomitant]
     Active Substance: PRAVASTATIN
     Dosage: 20 MG, 1X/DAY
     Route: 065
     Dates: start: 201305
  66. PRAVASTATIN [Concomitant]
     Active Substance: PRAVASTATIN
     Dosage: 20 MG, 1X/DAY
     Route: 065
     Dates: start: 20141102
  67. PRAVASTATIN [Concomitant]
     Active Substance: PRAVASTATIN
     Dosage: 20 MG, 1X/DAY
     Route: 065
     Dates: start: 20140211
  68. PRAVASTATIN [Concomitant]
     Active Substance: PRAVASTATIN
     Dosage: 20 MG, 1X/DAY
     Route: 065
     Dates: start: 20150222, end: 20160205
  69. PRAVASTATIN [Concomitant]
     Active Substance: PRAVASTATIN
     Dosage: 10 MG, 1X/DAY
     Route: 065
     Dates: start: 20100915, end: 20140223
  70. PRAVASTATIN [Concomitant]
     Active Substance: PRAVASTATIN
     Dosage: 10 MG, 1X/DAY
     Route: 065
     Dates: start: 20151203, end: 20160322
  71. PRAVASTATIN [Concomitant]
     Active Substance: PRAVASTATIN
     Dosage: 10 MG, 1X/DAY
     Route: 065
     Dates: start: 20161105, end: 20170101
  72. AMLODIPINE [Concomitant]
     Active Substance: AMLODIPINE BESYLATE
     Indication: Hypertension
     Dosage: 5 MG, UNK
     Route: 065
     Dates: start: 20100915, end: 20140314
  73. AMLODIPINE [Concomitant]
     Active Substance: AMLODIPINE BESYLATE
     Dosage: 5 MG, UNK
     Route: 065
     Dates: start: 20141102, end: 20150212
  74. AMLODIPINE [Concomitant]
     Active Substance: AMLODIPINE BESYLATE
     Dosage: 5 MG, UNK
     Route: 065
     Dates: start: 20151203, end: 20160915
  75. METOPROLOL TARTRATE [Concomitant]
     Active Substance: METOPROLOL TARTRATE
     Indication: Hypertension
     Dosage: 50 MG, 2X/DAY
     Route: 065
     Dates: start: 20080118, end: 20091223
  76. METOPROLOL TARTRATE [Concomitant]
     Active Substance: METOPROLOL TARTRATE
     Dosage: 50 MG, 2X/DAY
     Route: 065
     Dates: start: 20100915, end: 20150618
  77. CITALOPRAM [Concomitant]
     Active Substance: CITALOPRAM HYDROBROMIDE
     Indication: Depression
     Dosage: 20 MG, 1X/DAY
     Route: 065
     Dates: start: 20080109, end: 20091105
  78. CITALOPRAM [Concomitant]
     Active Substance: CITALOPRAM HYDROBROMIDE
     Dosage: 20 MG, 1X/DAY
     Route: 065
     Dates: start: 20100915, end: 20140114
  79. CITALOPRAM [Concomitant]
     Active Substance: CITALOPRAM HYDROBROMIDE
     Dosage: 20 MG, 1X/DAY
     Route: 065
     Dates: start: 20140411
  80. CITALOPRAM [Concomitant]
     Active Substance: CITALOPRAM HYDROBROMIDE
     Dosage: 20 MG, 1X/DAY
     Route: 065
     Dates: start: 20140709, end: 20150915
  81. CITALOPRAM [Concomitant]
     Active Substance: CITALOPRAM HYDROBROMIDE
     Dosage: 20 MG, 1X/DAY
     Dates: start: 20151230, end: 20170202
  82. LANTUS [Concomitant]
     Active Substance: INSULIN GLARGINE
     Indication: Type 2 diabetes mellitus
     Dosage: 85 UNITS, 2X/DAY
     Route: 065
     Dates: start: 20080131, end: 20100101
  83. LANTUS [Concomitant]
     Active Substance: INSULIN GLARGINE
     Dosage: 100 UNITS/ML
     Route: 065
     Dates: start: 20100915, end: 20130905
  84. LANTUS [Concomitant]
     Active Substance: INSULIN GLARGINE
     Dosage: 100 UNITS/ML
     Route: 065
     Dates: start: 20140929, end: 20160809
  85. LANTUS [Concomitant]
     Active Substance: INSULIN GLARGINE
     Dosage: 100 UNITS/ML
     Dates: start: 20161130, end: 20161229
  86. ACTOS [Concomitant]
     Active Substance: PIOGLITAZONE HYDROCHLORIDE
     Indication: Type 2 diabetes mellitus
     Dosage: 45 MG, 1X/DAY
     Route: 065
     Dates: start: 20080103, end: 20091104
  87. NIASPAN ER [Concomitant]
     Active Substance: NIACIN
     Indication: Blood cholesterol abnormal
     Dosage: 500 MG, 1X/DAY
     Route: 065
     Dates: start: 20080129, end: 20090126
  88. NIASPAN ER [Concomitant]
     Active Substance: NIACIN
     Indication: Blood triglycerides abnormal
     Dosage: 500 MG, 1X/DAY
     Dates: start: 20090323, end: 20090422
  89. GABAPENTIN [Concomitant]
     Active Substance: GABAPENTIN
     Indication: Pain in extremity
     Dosage: 300 MG, DAILY
     Route: 065
     Dates: start: 20080204, end: 20080501
  90. GABAPENTIN [Concomitant]
     Active Substance: GABAPENTIN
     Indication: Pain
     Dosage: 300 MG, UNK
     Route: 065
     Dates: start: 20150519, end: 20151206
  91. GABAPENTIN [Concomitant]
     Active Substance: GABAPENTIN
     Dosage: 300 MG, UNK
     Route: 065
     Dates: start: 20160405, end: 20160504
  92. GABAPENTIN [Concomitant]
     Active Substance: GABAPENTIN
     Dosage: 300 MG, UNK
     Route: 065
     Dates: start: 20160606, end: 20160705
  93. GABAPENTIN [Concomitant]
     Active Substance: GABAPENTIN
     Dosage: 600 MG, UNK
     Route: 065
     Dates: start: 20161219, end: 20170317
  94. DEBROX [Concomitant]
     Active Substance: CARBAMIDE PEROXIDE
     Indication: Excessive cerumen production
     Dosage: UNK
     Route: 065
     Dates: start: 20080424, end: 20080429
  95. DEBROX [Concomitant]
     Active Substance: CARBAMIDE PEROXIDE
     Dosage: 300 MG, UNK
     Route: 065
     Dates: start: 20150519, end: 20151206
  96. DEBROX [Concomitant]
     Active Substance: CARBAMIDE PEROXIDE
     Dosage: 600 MG, UNK
     Route: 065
     Dates: start: 20161219, end: 20170317
  97. CHERATUSSIN AC [Concomitant]
     Active Substance: CODEINE PHOSPHATE\GUAIFENESIN
     Indication: Cough
     Dosage: UNK, EVERY 6 HOURS AS NEEDED
     Route: 065
     Dates: start: 200909
  98. AUGMENTIN XR [Concomitant]
     Active Substance: AMOXICILLIN\CLAVULANATE POTASSIUM
     Indication: Bacterial infection
     Dosage: UNK, 12 HOUR 4X/DAY
     Route: 065
     Dates: start: 20090325, end: 20090403
  99. ACETAMINOPHEN\HYDROCODONE [Concomitant]
     Active Substance: ACETAMINOPHEN\HYDROCODONE
     Indication: Pain
     Dosage: UNK
     Route: 065
     Dates: start: 20080815, end: 20080818
  100. ACETAMINOPHEN\HYDROCODONE [Concomitant]
     Active Substance: ACETAMINOPHEN\HYDROCODONE
     Dosage: UNK
     Dates: start: 20100721, end: 20100725
  101. ACETAMINOPHEN\HYDROCODONE [Concomitant]
     Active Substance: ACETAMINOPHEN\HYDROCODONE
     Dosage: UNK
     Dates: start: 20150815
  102. ACETAMINOPHEN\HYDROCODONE [Concomitant]
     Active Substance: ACETAMINOPHEN\HYDROCODONE
     Dosage: UNK
     Dates: start: 20101103, end: 20101104
  103. ACETAMINOPHEN\HYDROCODONE [Concomitant]
     Active Substance: ACETAMINOPHEN\HYDROCODONE
     Dosage: UNK
     Dates: start: 20150923, end: 20150928
  104. ACETAMINOPHEN\HYDROCODONE [Concomitant]
     Active Substance: ACETAMINOPHEN\HYDROCODONE
     Dosage: UNK
     Dates: start: 201608
  105. ACETAMINOPHEN\HYDROCODONE [Concomitant]
     Active Substance: ACETAMINOPHEN\HYDROCODONE
     Dosage: UNK
     Dates: start: 20161130, end: 20161230
  106. PROMETHAZINE [Concomitant]
     Active Substance: PROMETHAZINE HYDROCHLORIDE
     Indication: Nausea
     Dosage: 25 MG, UNK
     Route: 065
     Dates: start: 20110312, end: 20110321
  107. PROMETHAZINE [Concomitant]
     Active Substance: PROMETHAZINE HYDROCHLORIDE
     Indication: Vomiting
  108. RANITIDINE [Concomitant]
     Active Substance: RANITIDINE
     Indication: Gastrooesophageal reflux disease
     Dosage: 150 MG, UNK
     Route: 065
     Dates: start: 20120215, end: 20120513
  109. HYDROCORTISONE [Concomitant]
     Active Substance: HYDROCORTISONE
     Indication: Analgesic intervention supportive therapy
     Dosage: UNK
     Route: 065
     Dates: start: 20131216, end: 20140115
  110. HYDROCORTISONE [Concomitant]
     Active Substance: HYDROCORTISONE
     Indication: Inflammation
     Dosage: UNK
     Dates: start: 20130115, end: 20131216
  111. HYDROCORTISONE [Concomitant]
     Active Substance: HYDROCORTISONE
     Indication: Antiinflammatory therapy
  112. PROVENTIL [Concomitant]
     Active Substance: ALBUTEROL
     Indication: Chronic obstructive pulmonary disease
     Dosage: 90 MCG
     Route: 065
     Dates: start: 20140414, end: 20140601
  113. PROAIR HFA [Concomitant]
     Active Substance: ALBUTEROL SULFATE
     Indication: Chronic obstructive pulmonary disease
     Dosage: 90 MCG
     Route: 065
     Dates: start: 20160407, end: 20160507
  114. SPIRIVA [Concomitant]
     Active Substance: TIOTROPIUM BROMIDE MONOHYDRATE
     Indication: Chronic obstructive pulmonary disease
     Dosage: 18 MCG
     Route: 065
     Dates: start: 20140613, end: 20140713
  115. SPIRIVA [Concomitant]
     Active Substance: TIOTROPIUM BROMIDE MONOHYDRATE
     Dosage: 18 MCG
     Dates: start: 20140414, end: 20160802
  116. CYCLOBENZAPRINE [Concomitant]
     Active Substance: CYCLOBENZAPRINE
     Indication: Muscle relaxant therapy
     Dosage: 10 MG, UNK
     Route: 065
     Dates: start: 20140613, end: 20140713
  117. CYCLOBENZAPRINE [Concomitant]
     Active Substance: CYCLOBENZAPRINE
     Indication: Muscle spasms
     Dosage: 10 MG, UNK
     Route: 065
     Dates: start: 20140929, end: 20141029
  118. CYCLOBENZAPRINE [Concomitant]
     Active Substance: CYCLOBENZAPRINE
     Dosage: 10 MG, UNK
     Route: 065
     Dates: start: 20141222, end: 20150214
  119. CVS BACITRACIN [Concomitant]
     Indication: Infection prophylaxis
     Dosage: 500 UNIT/G
     Route: 065
     Dates: start: 20140929, end: 20141029
  120. CLINDAMYCIN [Concomitant]
     Active Substance: CLINDAMYCIN
     Indication: Bacterial infection
     Dosage: 300 MG, UNK
     Route: 065
     Dates: start: 20150923, end: 20151006
  121. IBUPROFEN [Concomitant]
     Active Substance: IBUPROFEN
     Indication: Pain
     Dosage: 400 MG, UNK
     Route: 065
     Dates: start: 20160112, end: 20160125
  122. IBUPROFEN [Concomitant]
     Active Substance: IBUPROFEN
     Indication: Analgesic intervention supportive therapy
     Dosage: 400 MG, UNK
     Route: 065
     Dates: start: 20160407, end: 20160506
  123. IBUPROFEN [Concomitant]
     Active Substance: IBUPROFEN
     Indication: Inflammation
     Dosage: 400 MG, UNK
     Route: 065
     Dates: start: 20160827, end: 20160926
  124. IBUPROFEN [Concomitant]
     Active Substance: IBUPROFEN
     Indication: Antiinflammatory therapy
     Dosage: 800 MG, UNK
     Route: 065
     Dates: start: 20101103, end: 20101202
  125. CEPHALEXIN [Concomitant]
     Active Substance: CEPHALEXIN
     Indication: Bacterial infection
     Dosage: 250 MG, UNK
     Route: 065
     Dates: start: 20160112, end: 20160125
  126. CEPHALEXIN [Concomitant]
     Active Substance: CEPHALEXIN
     Dosage: 500 MG, UNK
     Route: 065
     Dates: start: 20160203, end: 20160216
  127. CEPHALEXIN [Concomitant]
     Active Substance: CEPHALEXIN
     Dosage: 500 MG, UNK
     Route: 065
     Dates: start: 20160223, end: 20160308
  128. CEPHALEXIN [Concomitant]
     Active Substance: CEPHALEXIN
     Dosage: 500 MG, UNK
     Route: 065
     Dates: start: 20170208, end: 20170221
  129. CEPHALEXIN [Concomitant]
     Active Substance: CEPHALEXIN
     Dosage: UNK
     Dates: start: 201607
  130. TAMSULOSIN [Concomitant]
     Active Substance: TAMSULOSIN
     Indication: Benign prostatic hyperplasia
     Dosage: 0.4 MG, UNK
     Route: 065
     Dates: start: 20170119, end: 20170720
  131. ONDANSETRON [Concomitant]
     Active Substance: ONDANSETRON
     Indication: Nausea
     Dosage: 8 MG, UNK
     Route: 065
     Dates: start: 20090314, end: 20090319
  132. ONDANSETRON [Concomitant]
     Active Substance: ONDANSETRON
     Indication: Vomiting
  133. PREDNISONE [Concomitant]
     Active Substance: PREDNISONE
     Indication: Analgesic intervention supportive therapy
     Dosage: 20 MG, UNK
     Route: 065
     Dates: start: 20160727, end: 20161004
  134. PREDNISONE [Concomitant]
     Active Substance: PREDNISONE
     Indication: Inflammation
  135. PREDNISONE [Concomitant]
     Active Substance: PREDNISONE
     Indication: Antiinflammatory therapy
  136. FENTANYL [Concomitant]
     Active Substance: FENTANYL
     Indication: Colonoscopy abnormal
     Dosage: 50 MCG
     Route: 042
     Dates: start: 20140821
  137. FENTANYL [Concomitant]
     Active Substance: FENTANYL
     Indication: Pain
  138. MIDAZOLAM [Concomitant]
     Active Substance: MIDAZOLAM
     Indication: Colonoscopy abnormal
     Dosage: 2 MG, UNK
     Route: 042
     Dates: start: 20140821
  139. MIDAZOLAM [Concomitant]
     Active Substance: MIDAZOLAM
     Indication: Sedation
  140. PROPOFOL [Concomitant]
     Active Substance: PROPOFOL
     Indication: Colonoscopy abnormal
     Dosage: 100 MG, UNK
     Route: 042
     Dates: start: 20140821
  141. PROPOFOL [Concomitant]
     Active Substance: PROPOFOL
     Indication: Sedation
  142. BUPIVACAINE [Concomitant]
     Active Substance: BUPIVACAINE
     Indication: Local anaesthesia
     Dosage: UNK
     Route: 065
     Dates: start: 20160203
  143. CALCIUM CARBONATE [Concomitant]
     Active Substance: CALCIUM CARBONATE
     Dosage: 500 MG, UNK
     Route: 065
     Dates: start: 201202, end: 201305
  144. CALCIUM CARBONATE [Concomitant]
     Active Substance: CALCIUM CARBONATE
     Dosage: UNK
     Dates: start: 20150224
  145. CALCIUM CARBONATE [Concomitant]
     Active Substance: CALCIUM CARBONATE
     Dosage: UNK
     Dates: start: 20150801
  146. CALCIUM CARBONATE [Concomitant]
     Active Substance: CALCIUM CARBONATE
     Dosage: UNK
     Dates: start: 20160112
  147. CALCIUM CARBONATE [Concomitant]
     Active Substance: CALCIUM CARBONATE
     Dosage: UNK
     Dates: start: 20160413
  148. CALCIUM CARBONATE [Concomitant]
     Active Substance: CALCIUM CARBONATE
     Dosage: UNK
     Dates: start: 20160606
  149. CALCIUM CARBONATE [Concomitant]
     Active Substance: CALCIUM CARBONATE
     Dosage: UNK
     Dates: start: 20160714
  150. CALCIUM CARBONATE [Concomitant]
     Active Substance: CALCIUM CARBONATE
     Dosage: UNK
     Dates: start: 20161004
  151. HUMULIN R [Concomitant]
     Active Substance: INSULIN HUMAN
     Indication: Type 2 diabetes mellitus
     Dosage: UNK
     Dates: start: 20100915, end: 20111125
  152. HUMULIN R [Concomitant]
     Active Substance: INSULIN HUMAN
     Dosage: UNK
     Dates: start: 20120215, end: 20130107
  153. HUMULIN R [Concomitant]
     Active Substance: INSULIN HUMAN
     Dosage: UNK
     Dates: start: 20130205, end: 20130601
  154. HUMULIN R [Concomitant]
     Active Substance: INSULIN HUMAN
     Dosage: UNK
     Dates: start: 20131203, end: 20140102
  155. HUMULIN R [Concomitant]
     Active Substance: INSULIN HUMAN
     Dosage: UNK
     Dates: start: 20141014, end: 20160606
  156. OXYCODONE AND ACETAMINOPHEN [Concomitant]
     Active Substance: ACETAMINOPHEN\OXYCODONE HYDROCHLORIDE
     Indication: Pain
     Dosage: UNK
     Dates: start: 20110312, end: 20110316
  157. OXYCODONE AND ACETAMINOPHEN [Concomitant]
     Active Substance: ACETAMINOPHEN\OXYCODONE HYDROCHLORIDE
     Dosage: UNK
     Dates: start: 20161216
  158. OXYCODONE AND ACETAMINOPHEN [Concomitant]
     Active Substance: ACETAMINOPHEN\OXYCODONE HYDROCHLORIDE
     Dosage: UNK
     Dates: start: 20161111, end: 20161212
  159. NOVOLIN R [Concomitant]
     Active Substance: INSULIN HUMAN
     Indication: Type 2 diabetes mellitus
     Dosage: UNK
     Dates: start: 20170120, end: 20170219
  160. ASPIRIN [Concomitant]
     Active Substance: ASPIRIN
     Indication: Cardiovascular event prophylaxis
     Dosage: 81 MG, UNK
     Dates: start: 20141222, end: 20150606
  161. ASPIRIN [Concomitant]
     Active Substance: ASPIRIN
     Dosage: UNK
     Dates: start: 20150705, end: 20160606
  162. ASPIRIN [Concomitant]
     Active Substance: ASPIRIN
     Dosage: 81 MG, UNK
     Dates: start: 20160606
  163. OYSCO 500+D [Concomitant]
     Indication: Mineral supplementation
     Dosage: UNK
     Dates: start: 20120215, end: 20121009
  164. OYSCO 500+D [Concomitant]
     Indication: Gastric pH decreased
     Dosage: UNK
     Dates: start: 20130131, end: 20130523
  165. OFLOXACIN [Concomitant]
     Active Substance: OFLOXACIN
     Indication: Conjunctivitis bacterial
     Dosage: UNK
     Dates: start: 201305
  166. POLYETHYLENE GLYCOL 3350 AND ELECTROLYTES [Concomitant]
     Active Substance: POLYETHYLENE GLYCOL 3350\POTASSIUM CHLORIDE\SODIUM BICARBONATE\SODIUM CHLORIDE\SODIUM SULFATE
     Indication: Bowel preparation
     Dosage: UNK
     Dates: start: 20140613
  167. CHLORHEXIDINE [Concomitant]
     Active Substance: CHLORHEXIDINE
     Dosage: UNK
     Dates: start: 201509
  168. DOCUSATE SODIUM-SENNA [Concomitant]
     Indication: Constipation
     Dosage: UNK
     Dates: start: 20161130, end: 20161229
  169. GOLYTELY [Concomitant]
     Active Substance: POLYETHYLENE GLYCOL 3350\POTASSIUM CHLORIDE\SODIUM BICARBONATE\SODIUM CHLORIDE\SODIUM SULFATE
     Indication: Bowel preparation
     Dosage: UNK
     Dates: start: 20140613
  170. ASPIRIN [Concomitant]
     Active Substance: ASPIRIN
     Indication: Cardiovascular event prophylaxis
     Dosage: 81 MG, UNK
     Dates: start: 20120215, end: 20120810
  171. ASPIRIN [Concomitant]
     Active Substance: ASPIRIN
     Dosage: 81 MG, UNK
     Dates: start: 20121107, end: 20130523
  172. ASPIRIN [Concomitant]
     Active Substance: ASPIRIN
     Dosage: 81 MG, UNK
     Dates: start: 20140929, end: 20141029
  173. FAMOTIDINE, CALCIUM CARBONATE AND MAGNESIUM HYDROXIDE (OTC) [Concomitant]
     Dosage: UNK
  174. CALCIUM CARBONATE/VITAMIN D NOS [Concomitant]
     Dosage: UNK
     Dates: start: 201202, end: 201305
  175. AUGMENTIN XR [Concomitant]
     Active Substance: AMOXICILLIN\CLAVULANATE POTASSIUM
     Indication: Bacterial infection
     Dosage: UNK, 12 HOUR 4X/DAY
     Dates: start: 20090325, end: 20090403
  176. PROMETHAZINE [Concomitant]
     Active Substance: PROMETHAZINE HYDROCHLORIDE
     Indication: Nausea
     Dosage: 25 MG, UNK
     Dates: start: 20090317, end: 20090402
  177. PROMETHAZINE [Concomitant]
     Active Substance: PROMETHAZINE HYDROCHLORIDE
     Indication: Vomiting

REACTIONS (3)
  - Acute kidney injury [Not Recovered/Not Resolved]
  - Chronic kidney disease [Unknown]
  - Renal failure [Unknown]

NARRATIVE: CASE EVENT DATE: 20130514
